FAERS Safety Report 13539043 (Version 3)
Quarter: 2017Q2

REPORT INFORMATION
  Report Type: Report from Study
  Country: BR (occurrence: BR)
  Receive Date: 20170512
  Receipt Date: 20170605
  Transmission Date: 20170830
  Serious: Yes (Hospitalization, Other)
  Sender: FDA-Public Use
  Company Number: PHHY2017BR069676

PATIENT
  Sex: Female
  Weight: 64 kg

DRUGS (3)
  1. EXELON PATCH [Suspect]
     Active Substance: RIVASTIGMINE
     Indication: DEMENTIA ALZHEIMER^S TYPE
     Dosage: 4.5 MG, PATCH 5 CM2
     Route: 062
  2. EPEZ [Suspect]
     Active Substance: DONEPEZIL HYDROCHLORIDE
     Indication: PRODUCT USED FOR UNKNOWN INDICATION
     Route: 065
  3. EXELON PATCH [Suspect]
     Active Substance: RIVASTIGMINE
     Dosage: 9.5 MG, QD PATCH 10 (CM2)
     Route: 062

REACTIONS (17)
  - Pancreatitis [Recovering/Resolving]
  - Atrophy [Unknown]
  - Dysentery [Recovering/Resolving]
  - Vomiting [Unknown]
  - Malaise [Unknown]
  - Drug intolerance [Unknown]
  - Weight decreased [Unknown]
  - Nausea [Unknown]
  - Speech disorder [Unknown]
  - Asthenia [Unknown]
  - Decreased appetite [Recovering/Resolving]
  - Application site streaking [Unknown]
  - Scratch [Unknown]
  - Blood glucose decreased [Unknown]
  - Application site burn [Unknown]
  - Secretion discharge [Unknown]
  - Application site pruritus [Unknown]
